FAERS Safety Report 19766696 (Version 1)
Quarter: 2021Q3

REPORT INFORMATION
  Report Type: Report from Study
  Country: BR (occurrence: BR)
  Receive Date: 20210831
  Receipt Date: 20210831
  Transmission Date: 20211014
  Serious: Yes (Other)
  Sender: FDA-Public Use
  Company Number: BR-IPSEN BIOPHARMACEUTICALS, INC.-2021-21000

PATIENT
  Age: 69 Year
  Sex: Female

DRUGS (11)
  1. SOMATULINE AUTOGEL [Suspect]
     Active Substance: LANREOTIDE ACETATE
     Indication: OFF LABEL USE
  2. SIMVASTATIN. [Concomitant]
     Active Substance: SIMVASTATIN
     Indication: BLOOD CHOLESTEROL INCREASED
     Dosage: 1 TABLET PER DAY, 7 OR 8 YEARS
     Route: 048
  3. PROPRANOLOL [Concomitant]
     Active Substance: PROPRANOLOL HYDROCHLORIDE
     Indication: VARICES OESOPHAGEAL
     Dosage: 1 TABLET PER DAY (FROM 10 YEARS)
     Route: 048
  4. IMOSEC [Concomitant]
     Active Substance: LOPERAMIDE
     Indication: DIARRHOEA
     Dosage: 1 TO 2 TABLETS PER DAY
     Route: 048
     Dates: start: 2020
  5. PARACETAMOL [Concomitant]
     Active Substance: ACETAMINOPHEN
     Indication: ABDOMINAL PAIN
     Dosage: 2 TO 3 TABLETS PER DAY, 7 OR 8 YEARS
     Route: 048
  6. INSULIN [Concomitant]
     Active Substance: INSULIN NOS
     Indication: DIABETES MELLITUS
  7. LEVOTHYROXINE. [Concomitant]
     Active Substance: LEVOTHYROXINE
     Indication: HYPOTHYROIDISM
     Dosage: 1 TABLET PER DAY (FROM 10 YEARS)
     Route: 048
  8. SOMATULINE AUTOGEL [Suspect]
     Active Substance: LANREOTIDE ACETATE
     Indication: SMALL INTESTINE CARCINOMA
     Route: 065
     Dates: start: 20210721
  9. TIMOLOL. [Concomitant]
     Active Substance: TIMOLOL
     Indication: GLAUCOMA
     Dosage: 1 DROP IN EACH EYE, TWICE PER DAY (FROM 10 YEARS)
     Route: 047
  10. HYDROCHLOROTHIAZIDE. [Concomitant]
     Active Substance: HYDROCHLOROTHIAZIDE
     Indication: PROPHYLAXIS
     Dosage: 1 TABLET PER DAY (FROM 10 YEARS)
     Route: 048
  11. CODEINE PHOSPHATE [Concomitant]
     Active Substance: CODEINE PHOSPHATE
     Indication: ABDOMINAL PAIN
     Dosage: 2 TO 3 TABLETS PER DAY, 7 OR 8 YEARS
     Route: 048

REACTIONS (4)
  - Off label use [Unknown]
  - Hypoglycaemia [Recovered/Resolved]
  - Diabetes mellitus [Recovered/Resolved]
  - Loss of consciousness [Recovered/Resolved]

NARRATIVE: CASE EVENT DATE: 202107
